FAERS Safety Report 5945299-5 (Version None)
Quarter: 2008Q4

REPORT INFORMATION
  Report Type: 
  Country: None (occurrence: None)
  Receive Date: 20081107
  Receipt Date: 20081027
  Transmission Date: 20090506
  Serious: Yes (Other)
  Sender: FDA-Public Use
  Company Number: US-ROCHE-595201

PATIENT
  Age: 51 Year
  Sex: Male

DRUGS (4)
  1. DACLIZUMAB [Suspect]
     Indication: IMMUNOSUPPRESSANT DRUG THERAPY
     Route: 065
  2. MYCOPHENOLATE MOFETIL [Suspect]
     Route: 065
  3. TACROLIMUS [Suspect]
     Route: 065
  4. STEROID NOS [Suspect]
     Route: 065

REACTIONS (1)
  - BK VIRUS INFECTION [None]
